FAERS Safety Report 7465041-9 (Version None)
Quarter: 2011Q2

REPORT INFORMATION
  Report Type: 
  Country: None (occurrence: None)
  Receive Date: 20110509
  Receipt Date: 20110429
  Transmission Date: 20111010
  Serious: Yes (Death)
  Sender: FDA-Public Use
  Company Number: US-CELGENEUS-163-21880-11050011

PATIENT
  Sex: Male

DRUGS (9)
  1. ACYCLOVIR [Concomitant]
     Dosage: 400 MILLIGRAM
     Route: 048
  2. MSIR [Concomitant]
     Dosage: 15 MILLIGRAM
     Route: 048
  3. OXYCODONE [Concomitant]
     Dosage: 5 MILLIGRAM
     Route: 048
  4. FLUCONAZOLE [Concomitant]
     Dosage: 100 MILLIGRAM
     Route: 048
  5. LEVAQUIN [Concomitant]
     Dosage: 250 MILLIGRAM
     Route: 048
  6. REVLIMID [Suspect]
     Dosage: 25 MILLIGRAM
     Route: 048
     Dates: start: 20110301
  7. ALLOPURINOL [Concomitant]
     Dosage: 100 MILLIGRAM
     Route: 048
  8. PRILOSEC [Concomitant]
     Dosage: 40 MILLIGRAM
     Route: 048
  9. POTASSIUM [Concomitant]
     Dosage: 25 MILLIEQUIVALENTS
     Route: 048

REACTIONS (1)
  - DEATH [None]
